FAERS Safety Report 23806872 (Version 1)
Quarter: 2024Q2

REPORT INFORMATION
  Report Type: Spontaneous
  Country: US (occurrence: US)
  Receive Date: 20240502
  Receipt Date: 20240502
  Transmission Date: 20240716
  Serious: No
  Sender: FDA-Public Use
  Company Number: US-RECKITT BENCKISER HEALTHCARE INT LIMITED-RB-081116-2024

PATIENT
  Age: 68 Year
  Sex: Male
  Weight: 74.55 kg

DRUGS (4)
  1. MUCINEX DM MAXIMUM STRENGTH [Suspect]
     Active Substance: DEXTROMETHORPHAN HYDROBROMIDE\GUAIFENESIN
     Indication: Respiratory tract congestion
     Dosage: TOOK TWO TABLET PER DAY
     Route: 048
     Dates: start: 20231203
  2. SIMVASTATIN [Concomitant]
     Active Substance: SIMVASTATIN
     Indication: Blood cholesterol increased
     Dosage: UNKNOWN
     Route: 065
  3. AMLODIPINE BESYLATE [Concomitant]
     Active Substance: AMLODIPINE BESYLATE
     Indication: Hypertension
     Dosage: UNKNOWN
     Route: 065
  4. HYDROCHLOROTHIAZIDE [Concomitant]
     Active Substance: HYDROCHLOROTHIAZIDE
     Indication: Hypertension
     Dosage: UNKNOWN
     Route: 065

REACTIONS (1)
  - Ageusia [Recovered/Resolved]

NARRATIVE: CASE EVENT DATE: 20231203
